FAERS Safety Report 10873621 (Version 1)
Quarter: 2015Q1

REPORT INFORMATION
  Report Type: Spontaneous
  Country: US (occurrence: None)
  Receive Date: 20150224
  Receipt Date: 20150224
  Transmission Date: 20150721
  Serious: Yes (Death, Life-Threatening, Hospitalization)
  Sender: FDA-Public Use
  Company Number: 20150091

PATIENT
  Age: 72 Year
  Sex: Female
  Weight: 55.9 kg

DRUGS (19)
  1. EPOGEN [Concomitant]
     Active Substance: ERYTHROPOIETIN
  2. LIBERTY CYCLER CASSETTE [Concomitant]
     Active Substance: DEVICE
  3. LIPITOR [Concomitant]
     Active Substance: ATORVASTATIN CALCIUM
  4. VENOFER [Suspect]
     Active Substance: IRON SUCROSE
     Indication: NEPHROGENIC ANAEMIA
     Dosage: 200 MG//QWK/IVP
     Dates: start: 201405
  5. ZYRTEC (CETIRIZINE) [Concomitant]
  6. DELFLEX [Concomitant]
     Active Substance: CALCIUM CHLORIDE\DEXTROSE MONOHYDRATE\MAGNESIUM CHLORIDE\SODIUM CHLORIDE\SODIUM LACTATE
  7. PRILOSEC (OMEPRAZOLE) [Concomitant]
     Active Substance: OMEPRAZOLE MAGNESIUM
  8. LORAZEPAM. [Concomitant]
     Active Substance: LORAZEPAM
  9. CLINDAMYCIN [Concomitant]
     Active Substance: CLINDAMYCIN\CLINDAMYCIN PHOSPHATE
  10. CARVEDILOL. [Concomitant]
     Active Substance: CARVEDILOL
  11. FOLIC ACID. [Concomitant]
     Active Substance: FOLIC ACID
  12. VENOFER [Suspect]
     Active Substance: IRON SUCROSE
     Indication: IRON DEFICIENCY ANAEMIA
     Dosage: 200 MG//QWK/IVP
     Dates: start: 201405
  13. PLAVIX (CLOPIDOGREL BISULFATE) [Concomitant]
  14. METESTROL [Concomitant]
  15. FLONASE (FLUTICASONE) [Concomitant]
  16. FRESENIUS LIBERTY CYCLER [Concomitant]
  17. RENVELA [Concomitant]
     Active Substance: SEVELAMER CARBONATE
  18. SYNTHROID [Concomitant]
     Active Substance: LEVOTHYROXINE SODIUM
  19. ALLOPURINOL. [Concomitant]
     Active Substance: ALLOPURINOL

REACTIONS (2)
  - Cardiac arrest [None]
  - Peritonitis [None]

NARRATIVE: CASE EVENT DATE: 20140705
